FAERS Safety Report 22267193 (Version 2)
Quarter: 2023Q2

REPORT INFORMATION
  Report Type: Spontaneous
  Country: US (occurrence: US)
  Receive Date: 20230428
  Receipt Date: 20230619
  Transmission Date: 20230722
  Serious: Yes (Other)
  Sender: FDA-Public Use
  Company Number: US-BRISTOL-MYERS SQUIBB COMPANY-2023-057773

PATIENT
  Age: 76 Year
  Sex: Male
  Weight: 84.37 kg

DRUGS (1)
  1. POMALYST [Suspect]
     Active Substance: POMALIDOMIDE
     Indication: Plasma cell myeloma
     Dosage: ONCE DAILY
     Route: 048
     Dates: start: 20210401

REACTIONS (4)
  - Pruritus [Not Recovered/Not Resolved]
  - Hiccups [Unknown]
  - Thrombosis [Unknown]
  - Constipation [Not Recovered/Not Resolved]

NARRATIVE: CASE EVENT DATE: 20221201
